FAERS Safety Report 19696520 (Version 2)
Quarter: 2022Q2

REPORT INFORMATION
  Report Type: Spontaneous
  Country: GB (occurrence: GB)
  Receive Date: 20210813
  Receipt Date: 20220404
  Transmission Date: 20220721
  Serious: Yes (Other)
  Sender: FDA-Public Use
  Company Number: None

PATIENT

DRUGS (3)
  1. PREDNISOLONE [Suspect]
     Active Substance: PREDNISOLONE
     Indication: Respiratory tract irritation
     Dosage: 30 MG
     Route: 048
     Dates: start: 20210730
  2. BOOTS IBUPROFEN [Concomitant]
     Indication: Ill-defined disorder
     Dosage: UNK
  3. BOOTS PARACETAMOL [Concomitant]
     Indication: Ill-defined disorder
     Dosage: UNK

REACTIONS (6)
  - Dyspnoea [Not Recovered/Not Resolved]
  - Feeling abnormal [Not Recovered/Not Resolved]
  - Chest discomfort [Not Recovered/Not Resolved]
  - Musculoskeletal discomfort [Not Recovered/Not Resolved]
  - Abdominal pain [Not Recovered/Not Resolved]
  - Abdominal distension [Not Recovered/Not Resolved]

NARRATIVE: CASE EVENT DATE: 20210804
